FAERS Safety Report 10152501 (Version 2)
Quarter: 2014Q2

REPORT INFORMATION
  Report Type: Spontaneous
  Country: TW (occurrence: TW)
  Receive Date: 20140505
  Receipt Date: 20140513
  Transmission Date: 20141212
  Serious: Yes (Hospitalization)
  Sender: FDA-Public Use
  Company Number: TW-SA-2014SA056944

PATIENT
  Age: 41 Year
  Sex: Female

DRUGS (3)
  1. PETHIDINE HYDROCHLORIDE [Suspect]
     Indication: POSTOPERATIVE ANALGESIA
     Dosage: RAPID INFUSION AFTER DILUTING IT IN THE 100 ML NORMAL SALINE
     Route: 042
  2. PETHIDINE HYDROCHLORIDE [Suspect]
     Indication: POSTOPERATIVE ANALGESIA
     Dosage: INFUSION COMPLETED WITHIN 15 MIN
     Route: 042
  3. NORMAL SALINE [Concomitant]
     Route: 042

REACTIONS (7)
  - Nervous system disorder [Recovered/Resolved]
  - Cerebellar syndrome [Recovered/Resolved]
  - Dysarthria [Recovered/Resolved]
  - Intention tremor [Recovered/Resolved]
  - IIIrd nerve disorder [Recovered/Resolved]
  - Eye movement disorder [Recovered/Resolved]
  - Nausea [Recovered/Resolved]
